FAERS Safety Report 8417379-6 (Version None)
Quarter: 2012Q2

REPORT INFORMATION
  Report Type: 
  Country: None (occurrence: None)
  Receive Date: 20120606
  Receipt Date: 20120521
  Transmission Date: 20120825
  Serious: No
  Sender: FDA-Public Use
  Company Number: US-ASTRAZENECA-2011SE58001

PATIENT
  Age: 59 Year
  Sex: Female
  Weight: 90.7 kg

DRUGS (10)
  1. SEROQUEL [Suspect]
     Indication: ANXIETY
     Route: 048
  2. SEROQUEL [Suspect]
     Route: 048
  3. XANAX [Concomitant]
  4. SEROQUEL [Suspect]
     Route: 048
  5. SEROQUEL [Suspect]
     Route: 048
  6. SEROQUEL [Suspect]
     Indication: DEPRESSION
     Route: 048
  7. SEROQUEL [Suspect]
     Route: 048
  8. SEROQUEL [Suspect]
     Route: 048
  9. SEROQUEL [Suspect]
     Indication: AGORAPHOBIA
     Route: 048
  10. SEROQUEL [Suspect]
     Route: 048

REACTIONS (11)
  - AGORAPHOBIA [None]
  - WEIGHT INCREASED [None]
  - MALAISE [None]
  - HYPERTENSION [None]
  - CONDITION AGGRAVATED [None]
  - OFF LABEL USE [None]
  - RESTLESSNESS [None]
  - LETHARGY [None]
  - ANXIETY [None]
  - BIPOLAR I DISORDER [None]
  - INTENTIONAL DRUG MISUSE [None]
